FAERS Safety Report 6822241-6 (Version None)
Quarter: 2010Q3

REPORT INFORMATION
  Report Type: 
  Country: None (occurrence: None)
  Receive Date: 20100708
  Receipt Date: 20100630
  Transmission Date: 20110219
  Serious: Yes (Other)
  Sender: FDA-Public Use
  Company Number: US-JNJFOC-20100700507

PATIENT
  Age: 67 Year
  Sex: Female
  Weight: 47.17 kg

DRUGS (4)
  1. FENTANYL-100 [Suspect]
     Indication: RHEUMATOID ARTHRITIS
     Route: 062
  2. FENTANYL-100 [Suspect]
     Indication: SPINAL CORD INJURY
     Route: 062
  3. FENTANYL-100 [Suspect]
     Indication: BACK PAIN
     Route: 062
  4. UNKNOWN MEDICATION [Concomitant]
     Indication: PRE-EXISTING DISEASE
     Route: 065

REACTIONS (2)
  - DEMENTIA [None]
  - WRONG TECHNIQUE IN DRUG USAGE PROCESS [None]
